FAERS Safety Report 7278258-3 (Version None)
Quarter: 2011Q1

REPORT INFORMATION
  Report Type: 
  Country: None (occurrence: None)
  Receive Date: 20110202
  Receipt Date: 20110202
  Transmission Date: 20110831
  Serious: Yes (Hospitalization, Other)
  Sender: FDA-Public Use
  Company Number: None

PATIENT
  Age: 63 Year
  Sex: Male
  Weight: 103.2 kg

DRUGS (1)
  1. VANCOMYCIN [Suspect]

REACTIONS (15)
  - ABDOMINAL PAIN UPPER [None]
  - STRESS ULCER [None]
  - HAEMATOCRIT DECREASED [None]
  - SYNCOPE [None]
  - SUBARACHNOID HAEMORRHAGE [None]
  - HAEMOGLOBIN DECREASED [None]
  - FALL [None]
  - RENAL FAILURE ACUTE [None]
  - LACERATION [None]
  - SUBDURAL HAEMORRHAGE [None]
  - DUODENAL ULCER [None]
  - THROMBOCYTOPENIA [None]
  - GASTROINTESTINAL HAEMORRHAGE [None]
  - DIARRHOEA [None]
  - HAEMATURIA [None]
